FAERS Safety Report 9370858 (Version 1)
Quarter: 2013Q2

REPORT INFORMATION
  Report Type: Spontaneous
  Country: GB (occurrence: GB)
  Receive Date: 20130626
  Receipt Date: 20130626
  Transmission Date: 20140414
  Serious: Yes (Other)
  Sender: FDA-Public Use
  Company Number: GB-NOVOPROD-380337

PATIENT
  Age: 35 Year
  Sex: Male

DRUGS (3)
  1. NOVORAPID [Suspect]
     Indication: TYPE 1 DIABETES MELLITUS
     Dosage: 1UNIT TO 5G CARBOHYDRATE
     Route: 065
  2. LANTUS [Suspect]
     Indication: TYPE 1 DIABETES MELLITUS
     Dosage: 40 IU, UNK
     Route: 065
  3. CORTICOSTEROIDS [Concomitant]

REACTIONS (3)
  - Vomiting [Unknown]
  - Ketoacidosis [Unknown]
  - Blood glucose increased [Unknown]
